FAERS Safety Report 15272700 (Version 1)
Quarter: 2018Q3

REPORT INFORMATION
  Report Type: Other
  Country: US (occurrence: US)
  Receive Date: 20180813
  Receipt Date: 20180813
  Transmission Date: 20181010
  Serious: Yes (Life-Threatening, Hospitalization)
  Sender: FDA-Public Use
  Company Number: US-GENUS_LIFESCIENCES-USA-POI0580201800105

PATIENT
  Age: 3 Year
  Sex: Female

DRUGS (1)
  1. GOPRELTO [Suspect]
     Active Substance: COCAINE HYDROCHLORIDE
     Dates: start: 2017, end: 2017

REACTIONS (6)
  - Apnoea [Unknown]
  - Brain oedema [Unknown]
  - Seizure [Unknown]
  - Tachycardia [Unknown]
  - Cardiac arrest [Unknown]
  - Cyanosis [Unknown]

NARRATIVE: CASE EVENT DATE: 201706
